FAERS Safety Report 16016553 (Version 1)
Quarter: 2019Q1

REPORT INFORMATION
  Report Type: Spontaneous
  Country: US (occurrence: US)
  Receive Date: 20190228
  Receipt Date: 20190228
  Transmission Date: 20190418
  Serious: Yes (Hospitalization, Other)
  Sender: FDA-Public Use
  Company Number: US-APOTEX-2019AP008634

PATIENT
  Age: 40 Year
  Sex: Female

DRUGS (5)
  1. ONDANSETRON HYDROCHLORIDE TABLETS USP [Suspect]
     Active Substance: ONDANSETRON HYDROCHLORIDE
     Indication: NAUSEA
     Dosage: UNK
     Route: 065
  2. ONDANSETRON INJECTION USP [Suspect]
     Active Substance: ONDANSETRON
     Indication: NAUSEA
     Dosage: 4 MG, UNK
     Route: 030
  3. ONDANSETRON INJECTION USP [Suspect]
     Active Substance: ONDANSETRON
     Indication: VOMITING
  4. AMIODARONE [Suspect]
     Active Substance: AMIODARONE
     Indication: VENTRICULAR TACHYCARDIA
     Dosage: 150 MG, SINGLE (A BOLUS INTRAVENOUS DOSE)
     Route: 042
  5. ONDANSETRON HYDROCHLORIDE TABLETS USP [Suspect]
     Active Substance: ONDANSETRON HYDROCHLORIDE
     Indication: VOMITING

REACTIONS (1)
  - Electrocardiogram QT prolonged [Recovered/Resolved]
